FAERS Safety Report 4705750-5 (Version None)
Quarter: 2005Q2

REPORT INFORMATION
  Report Type: 
  Country: None (occurrence: None)
  Receive Date: 20050629
  Receipt Date: 20050617
  Transmission Date: 20051028
  Serious: Yes (Other)
  Sender: FDA-Public Use
  Company Number: DSA_26644_2005

PATIENT
  Age: 52 Year
  Sex: Male

DRUGS (1)
  1. TEMESTA [Suspect]
     Indication: ANXIETY
     Dosage: DF UNK PO
     Route: 048

REACTIONS (2)
  - DYSGRAPHIA [None]
  - MUSCULOSKELETAL STIFFNESS [None]
